FAERS Safety Report 6189771-4 (Version None)
Quarter: 2009Q2

REPORT INFORMATION
  Report Type: 
  Country: None (occurrence: None)
  Receive Date: 20090514
  Receipt Date: 20090512
  Transmission Date: 20091009
  Serious: Yes (Death, Hospitalization)
  Sender: FDA-Public Use
  Company Number: FR-JNJFOC-20090502548

PATIENT
  Age: 83 Year
  Sex: Male

DRUGS (12)
  1. TAVANIC [Suspect]
     Indication: GENERALISED OEDEMA
     Route: 048
  2. TRAMADOL HCL [Suspect]
     Indication: DRUG USE FOR UNKNOWN INDICATION
     Route: 048
  3. CEFTRIAXONE [Suspect]
     Route: 042
  4. CEFTRIAXONE [Suspect]
     Indication: GENERALISED OEDEMA
     Route: 042
  5. FLUINDIONE [Interacting]
     Dosage: 0.75 U
     Route: 048
  6. FLUINDIONE [Interacting]
     Indication: ATRIAL FIBRILLATION
     Dosage: 0.75 U
     Route: 048
  7. TYGACIL [Suspect]
     Indication: GENERALISED OEDEMA
     Route: 042
  8. HYTACAND [Concomitant]
     Indication: HYPERTENSION
     Route: 048
  9. NOOTROPYL [Concomitant]
     Route: 048
  10. OMIX [Concomitant]
     Indication: PROSTATIC ADENOMA
     Route: 048
  11. ATARAX [Concomitant]
     Route: 065
  12. DOBUTAMINE HCL [Concomitant]
     Indication: GENERALISED OEDEMA
     Route: 065

REACTIONS (4)
  - CEREBRAL HAEMORRHAGE [None]
  - DRUG INTERACTION [None]
  - INTERNATIONAL NORMALISED RATIO INCREASED [None]
  - OVERDOSE [None]
